FAERS Safety Report 12327718 (Version 1)
Quarter: 2016Q2

REPORT INFORMATION
  Report Type: Spontaneous
  Country: CH (occurrence: CH)
  Receive Date: 20160503
  Receipt Date: 20160503
  Transmission Date: 20160815
  Serious: Yes (Hospitalization)
  Sender: FDA-Public Use
  Company Number: CH-PFIZER INC-2016237365

PATIENT
  Age: 74 Year
  Sex: Female

DRUGS (18)
  1. CYMBALTA [Interacting]
     Active Substance: DULOXETINE HYDROCHLORIDE
     Indication: DEPRESSION
     Dosage: 60 MG, DAILY
     Route: 048
  2. XARELTO [Concomitant]
     Active Substance: RIVAROXABAN
     Dosage: 20 MG, 1X/DAY
  3. CIPRALEX [Concomitant]
     Active Substance: ESCITALOPRAM OXALATE
     Dosage: 10 MG, 1X/DAY (2 CO 1X /D)
  4. MST CONTINUS [Concomitant]
     Active Substance: MORPHINE SULFATE
     Dosage: 10 MG, 2X/DAY
  5. PASPERTIN [Concomitant]
     Active Substance: METOCLOPRAMIDE HYDROCHLORIDE
     Dosage: 10 MG, AS NEEDED (IF NECESSARY)
  6. CORDARONE [Suspect]
     Active Substance: AMIODARONE HYDROCHLORIDE
     Indication: ATRIAL FIBRILLATION
     Dosage: 200 MG, DAILY
     Route: 048
     Dates: start: 20160210
  7. QUETIAPINE. [Interacting]
     Active Substance: QUETIAPINE
     Indication: ANXIETY
     Dosage: 12.5 MG, DAILY
     Route: 048
     Dates: start: 20160223
  8. TRAMAL [Concomitant]
     Active Substance: TRAMADOL
     Dosage: 50 MG, AS NEEDED (IF NECESSARY)
  9. MG5 ORALEFF [Concomitant]
     Dosage: UNK
  10. TEMESTA [Concomitant]
     Active Substance: LORAZEPAM
     Dosage: 1MG OR 2.5MG, AS NEEDED (IF NECESSARY)
  11. DILTIAZEM [Concomitant]
     Active Substance: DILTIAZEM
     Indication: HEART RATE ABNORMAL
     Dosage: 60 MG, 3X/DAY
  12. PURSANA [Concomitant]
     Active Substance: FIG FRUIT OIL\SORBITOL
     Dosage: UNK
  13. CALCIMAGON-D3 [Concomitant]
     Active Substance: CALCIUM\CHOLECALCIFEROL
     Dosage: 500 MG, 1X/DAY
  14. MOTILIUM [Concomitant]
     Active Substance: DOMPERIDONE
     Dosage: UNK
  15. RIVOTRIL [Concomitant]
     Active Substance: CLONAZEPAM
     Dosage: 0.5 MG, 1X/DAY (2 CO 1X / D)
  16. LAXOBERON [Concomitant]
     Active Substance: SODIUM PICOSULFATE
     Dosage: 5 MG, 1X/DAY
  17. QUETIAPINE. [Interacting]
     Active Substance: QUETIAPINE
     Dosage: 25 MG, DAILY
     Route: 048
     Dates: start: 20160312
  18. DAFALGAN [Concomitant]
     Active Substance: ACETAMINOPHEN
     Dosage: 1 G, 3X/DAY, IF NECESSARY

REACTIONS (3)
  - Drug interaction [Recovering/Resolving]
  - Hypothyroidism [Unknown]
  - Electrocardiogram QT prolonged [Recovering/Resolving]

NARRATIVE: CASE EVENT DATE: 20160216
